FAERS Safety Report 6493754-4 (Version None)
Quarter: 2009Q4

REPORT INFORMATION
  Report Type: 
  Country: None (occurrence: None)
  Receive Date: 20091214
  Receipt Date: 20091009
  Transmission Date: 20100525
  Serious: No
  Sender: FDA-Public Use
  Company Number: US-BRISTOL-MYERS SQUIBB COMPANY-14342133

PATIENT
  Age: 81 Year
  Sex: Female
  Weight: 44 kg

DRUGS (3)
  1. ABILIFY [Suspect]
     Indication: DEPRESSION
     Dosage: LACK OF EFFICACY IN THE LAST 9 MTH. QD OR BID ALSO TAKEN 2MG TABS WITH BATCH # 8D33014A
  2. XANAX [Concomitant]
     Dosage: HALF A TABLET
  3. TYLENOL (CAPLET) [Concomitant]

REACTIONS (3)
  - DRUG INEFFECTIVE [None]
  - TOOTH FRACTURE [None]
  - TOOTH LOSS [None]
